FAERS Safety Report 5259785-7 (Version None)
Quarter: 2007Q1

REPORT INFORMATION
  Report Type: 
  Country: None (occurrence: None)
  Receive Date: 20070307
  Receipt Date: 20070223
  Transmission Date: 20070707
  Serious: Yes (Death)
  Sender: FDA-Public Use
  Company Number: MC200600869

PATIENT
  Age: 75 Year
  Sex: Female
  Weight: 53.5 kg

DRUGS (2)
  1. ANGIOMAX [Suspect]
     Indication: PERCUTANEOUS CORONARY INTERVENTION
     Dosage: 7.5 ML, BOLUS, IV BOLUS, 17.5 ML, HR, INTRAVENOUS
     Route: 040
     Dates: start: 20061201, end: 20061201
  2. ANGIOMAX [Suspect]
     Indication: PERCUTANEOUS CORONARY INTERVENTION
     Dosage: 7.5 ML, BOLUS, IV BOLUS, 17.5 ML, HR, INTRAVENOUS
     Route: 040
     Dates: start: 20061201, end: 20061201

REACTIONS (11)
  - ATRIOVENTRICULAR BLOCK COMPLETE [None]
  - BLOOD PH DECREASED [None]
  - CARDIAC FAILURE CONGESTIVE [None]
  - CARDIAC PROCEDURE COMPLICATION [None]
  - CARDIO-RESPIRATORY ARREST [None]
  - CHEST PAIN [None]
  - CORONARY ARTERY PERFORATION [None]
  - DYSPNOEA [None]
  - EJECTION FRACTION DECREASED [None]
  - HYPOTENSION [None]
  - PERICARDIAL EFFUSION [None]
